FAERS Safety Report 25644240 (Version 1)
Quarter: 2025Q3

REPORT INFORMATION
  Report Type: Spontaneous
  Country: CA (occurrence: CA)
  Receive Date: 20250805
  Receipt Date: 20250805
  Transmission Date: 20251020
  Serious: Yes (Other)
  Sender: APOTEX
  Company Number: CA-APOTEX-2025AP010852

PATIENT
  Age: 28 Year
  Sex: Female

DRUGS (3)
  1. SORAFENIB [Suspect]
     Active Substance: SORAFENIB
     Indication: Acute myeloid leukaemia
     Dosage: 200 MILLIGRAM, BID (ON DAY +127)
     Route: 065
  2. SORAFENIB [Suspect]
     Active Substance: SORAFENIB
     Dosage: 200 MILLIGRAM, QD
     Route: 065
  3. SORAFENIB [Suspect]
     Active Substance: SORAFENIB
     Dosage: 200 MILLIGRAM, Q.O.D.
     Route: 065

REACTIONS (4)
  - Graft versus host disease in skin [Unknown]
  - Graft versus host disease in liver [Unknown]
  - Hypoglycaemia [Unknown]
  - Off label use [Unknown]
